FAERS Safety Report 10081949 (Version 1)
Quarter: 2014Q2

REPORT INFORMATION
  Report Type: Spontaneous
  Country: US (occurrence: None)
  Receive Date: 20140415
  Receipt Date: 20140415
  Transmission Date: 20141212
  Serious: Yes (Hospitalization)
  Sender: FDA-Public Use
  Company Number: None

PATIENT
  Age: 58 Year
  Sex: Male
  Weight: 92.6 kg

DRUGS (2)
  1. SOFOSBUVIR [Suspect]
     Indication: HEPATITIS C
     Dosage: 400 MG 1X/DAY PO
     Route: 048
     Dates: start: 20140219
  2. RIBAVIRIN [Suspect]
     Dosage: 600 MG 1X/DAY PO
     Route: 048

REACTIONS (1)
  - Colitis [None]
